FAERS Safety Report 8020204-9 (Version None)
Quarter: 2012Q1

REPORT INFORMATION
  Report Type: 
  Country: None (occurrence: None)
  Receive Date: 20120103
  Receipt Date: 20111222
  Transmission Date: 20120608
  Serious: Yes (Hospitalization, Other)
  Sender: FDA-Public Use
  Company Number: NL-MEDIMMUNE-MEDI-0013677

PATIENT
  Sex: Male
  Weight: 5.54 kg

DRUGS (2)
  1. SYNAGIS [Suspect]
     Indication: HEART DISEASE CONGENITAL
     Route: 030
  2. FLECAINIDE ACETATE [Concomitant]

REACTIONS (10)
  - BRONCHITIS [None]
  - PYREXIA [None]
  - WHEEZING [None]
  - INTERRUPTION OF AORTIC ARCH [None]
  - INFANTILE SPITTING UP [None]
  - CYANOSIS [None]
  - HYPOTONIA [None]
  - CRYING [None]
  - DYSPNOEA [None]
  - COUGH [None]
